FAERS Safety Report 22208078 (Version 1)
Quarter: 2023Q2

REPORT INFORMATION
  Report Type: Spontaneous
  Country: CA (occurrence: CA)
  Receive Date: 20230413
  Receipt Date: 20230413
  Transmission Date: 20230721
  Serious: Yes (Other)
  Sender: FDA-Public Use
  Company Number: CA-SAMSUNG BIOEPIS-SB-2023-09314

PATIENT
  Age: 43 Year
  Sex: Male

DRUGS (6)
  1. ETANERCEPT [Suspect]
     Active Substance: ETANERCEPT
     Indication: Ankylosing spondylitis
     Route: 065
  2. ETANERCEPT [Suspect]
     Active Substance: ETANERCEPT
     Route: 058
  3. CELEBREX [Suspect]
     Active Substance: CELECOXIB
     Indication: Product used for unknown indication
     Dosage: UNKNOWN
     Route: 065
  4. DICLOFENAC [Suspect]
     Active Substance: DICLOFENAC
     Indication: Product used for unknown indication
     Dosage: UNKNOWN
     Route: 065
  5. IBUPROFEN [Concomitant]
     Active Substance: IBUPROFEN
     Indication: Product used for unknown indication
     Dosage: UNKNOWN
     Route: 065
  6. NAPROXEN [Concomitant]
     Active Substance: NAPROXEN
     Indication: Product used for unknown indication
     Dosage: UNKNOWN
     Route: 065

REACTIONS (10)
  - Ankylosing spondylitis [Unknown]
  - Arthralgia [Unknown]
  - Back pain [Unknown]
  - Discomfort [Unknown]
  - Fatigue [Unknown]
  - Joint swelling [Unknown]
  - Musculoskeletal stiffness [Unknown]
  - Swelling [Unknown]
  - Drug ineffective [Unknown]
  - Product use issue [Unknown]
